FAERS Safety Report 11343672 (Version 1)
Quarter: 2015Q3

REPORT INFORMATION
  Report Type: Spontaneous
  Country: US (occurrence: None)
  Receive Date: 20150804
  Receipt Date: 20150804
  Transmission Date: 20151125
  Serious: Yes (Other)
  Sender: FDA-Public Use
  Company Number: TPU2015-00388

PATIENT
  Sex: Female
  Weight: 65.32 kg

DRUGS (6)
  1. BOTOX (BOTULINUM TOXIN TYPE A) [Concomitant]
  2. LIDOCAINE PATCH [Suspect]
     Active Substance: LIDOCAINE
     Indication: PAIN
     Route: 061
     Dates: start: 2012
  3. LIDOCAINE PATCH [Suspect]
     Active Substance: LIDOCAINE
     Indication: MUSCLE SPASMS
     Route: 061
     Dates: start: 2012
  4. CLEMETINE (OTHER THERAPEUTIC PRODUCTS) [Concomitant]
  5. BACLOFEN (BACLOFEN) [Concomitant]
     Active Substance: BACLOFEN
  6. AMBIEN [Concomitant]
     Active Substance: ZOLPIDEM TARTRATE

REACTIONS (5)
  - Thoracic operation [None]
  - Product adhesion issue [None]
  - Wrong technique in product usage process [None]
  - Dystonia [None]
  - Dyskinesia [None]

NARRATIVE: CASE EVENT DATE: 2014
